FAERS Safety Report 25154179 (Version 6)
Quarter: 2025Q3

REPORT INFORMATION
  Report Type: Report from Study
  Country: BR (occurrence: BR)
  Receive Date: 20250403
  Receipt Date: 20250811
  Transmission Date: 20251020
  Serious: Yes (Death, Other)
  Sender: TAKEDA
  Company Number: BR-TAKEDA-2025TUS032474

PATIENT
  Sex: Female
  Weight: 62.8 kg

DRUGS (2)
  1. MOBOCERTINIB [Suspect]
     Active Substance: MOBOCERTINIB
     Indication: Product used for unknown indication
     Dosage: 120 MILLIGRAM, QD
     Dates: start: 20240508, end: 20240731
  2. MOBOCERTINIB [Suspect]
     Active Substance: MOBOCERTINIB

REACTIONS (6)
  - Metastases to central nervous system [Fatal]
  - Metastases to lung [Fatal]
  - Metastases to liver [Fatal]
  - Sepsis [Fatal]
  - Treatment failure [Unknown]
  - Product dose omission issue [Unknown]
